FAERS Safety Report 8907900 (Version 1)
Quarter: 2012Q4

REPORT INFORMATION
  Report Type: 
  Country: US (occurrence: US)
  Receive Date: 20121113
  Receipt Date: 20121113
  Transmission Date: 20130627
  Serious: No
  Sender: FDA-Public Use
  Company Number: US-AMGEN-USASP2012039513

PATIENT
  Sex: Female
  Weight: 79.82 kg

DRUGS (12)
  1. ENBREL [Suspect]
     Indication: PRODUCT USED FOR UNKNOWN INDICATION
     Dosage: 50 mg, qwk
     Route: 058
  2. SINGULAIR [Concomitant]
     Dosage: 10 mg, UNK
  3. PROTONIX [Concomitant]
     Dosage: 20 mg, UNK
  4. PLAQUENIL                          /00072602/ [Concomitant]
     Dosage: 200 mg, UNK
  5. COUMADIN                           /00014802/ [Concomitant]
     Dosage: 5 mg, UNK
  6. ZYRTEC [Concomitant]
     Dosage: 5 mg, UNK
  7. SYNTHROID [Concomitant]
     Dosage: 88 mug, UNK
  8. PROVENTIL HFA                      /00139501/ [Concomitant]
     Dosage: UNK
  9. LEFLUNOMIDE [Concomitant]
     Dosage: 20 mg, UNK
  10. FLOVENT HFA [Concomitant]
     Dosage: 44 mug, UNK
  11. SPIRIVA HANDIHALER [Concomitant]
     Dosage: UNK
  12. POTASSIUM [Concomitant]
     Dosage: 75 mg, UNK

REACTIONS (2)
  - Rash erythematous [Unknown]
  - Rash pruritic [Unknown]
